FAERS Safety Report 8247156-0 (Version None)
Quarter: 2012Q1

REPORT INFORMATION
  Report Type: 
  Country: None (occurrence: None)
  Receive Date: 20120330
  Receipt Date: 20120321
  Transmission Date: 20120608
  Serious: Yes (Other)
  Sender: FDA-Public Use
  Company Number: US-JNJFOC-20120312190

PATIENT
  Sex: Female

DRUGS (1)
  1. REMICADE [Suspect]
     Indication: CROHN'S DISEASE
     Route: 042
     Dates: start: 20000101

REACTIONS (8)
  - GENERALISED ERYTHEMA [None]
  - PALPITATIONS [None]
  - FLUSHING [None]
  - DYSGEUSIA [None]
  - HAEMATURIA [None]
  - INFUSION RELATED REACTION [None]
  - BONE PAIN [None]
  - COUGH [None]
